FAERS Safety Report 8482808-9 (Version None)
Quarter: 2012Q3

REPORT INFORMATION
  Report Type: 
  Country: None (occurrence: None)
  Receive Date: 20120702
  Receipt Date: 20120626
  Transmission Date: 20120928
  Serious: Yes (Other)
  Sender: FDA-Public Use
  Company Number: TH-JNJFOC-20120210833

PATIENT
  Age: 73 Year
  Sex: Male
  Weight: 85 kg

DRUGS (4)
  1. XARELTO [Suspect]
     Indication: HIP SURGERY
     Route: 048
     Dates: start: 20120103, end: 20120117
  2. ENOXAPARIN [Concomitant]
     Indication: THROMBOSIS PROPHYLAXIS
     Dosage: 0.6 MG ML, ONCE
     Route: 058
     Dates: start: 20120117
  3. XARELTO [Suspect]
     Indication: THROMBOSIS PROPHYLAXIS
     Route: 048
     Dates: start: 20120103, end: 20120117
  4. ENOXAPARIN [Concomitant]
     Dosage: 0.4 ML, ONCE
     Route: 058
     Dates: start: 20120103, end: 20120103

REACTIONS (1)
  - DEEP VEIN THROMBOSIS [None]
